FAERS Safety Report 13479681 (Version 2)
Quarter: 2017Q3

REPORT INFORMATION
  Report Type: Report from Study
  Country: US (occurrence: US)
  Receive Date: 20170424
  Receipt Date: 20170728
  Transmission Date: 20171127
  Serious: No
  Sender: FDA-Public Use
  Company Number: US-AMGEN-USASL2017038062

PATIENT
  Age: 51 Year
  Sex: Male
  Weight: 105.21 kg

DRUGS (2)
  1. REPATHA [Suspect]
     Active Substance: EVOLOCUMAB
     Indication: ATRIOVENTRICULAR BLOCK
     Dosage: 140 MG, Q2WK
     Route: 065
     Dates: start: 20160915
  2. REPATHA [Suspect]
     Active Substance: EVOLOCUMAB
     Indication: HYPERTENSION

REACTIONS (6)
  - Malaise [Unknown]
  - Headache [Unknown]
  - Back pain [Unknown]
  - Vomiting [Unknown]
  - Influenza like illness [Unknown]
  - Inappropriate schedule of drug administration [Unknown]

NARRATIVE: CASE EVENT DATE: 20170308
